FAERS Safety Report 13420217 (Version 1)
Quarter: 2017Q2

REPORT INFORMATION
  Report Type: Report from Study
  Country: CA (occurrence: CA)
  Receive Date: 20170407
  Receipt Date: 20170407
  Transmission Date: 20170830
  Serious: Yes (Other)
  Sender: FDA-Public Use
  Company Number: CA-AMGEN-CANSL2017052772

PATIENT
  Sex: Female

DRUGS (8)
  1. VALIUM [Concomitant]
     Active Substance: DIAZEPAM
     Dosage: UNK
  2. VENTOLIN [Concomitant]
     Active Substance: ALBUTEROL SULFATE
     Dosage: UNK
  3. FLOVENT [Concomitant]
     Active Substance: FLUTICASONE PROPIONATE
     Dosage: UNK
  4. ENBREL [Suspect]
     Active Substance: ETANERCEPT
     Indication: ANKYLOSING SPONDYLITIS
     Dosage: 50 MG, UNK
     Route: 065
     Dates: start: 20061208
  5. ZOPICLONE [Concomitant]
     Active Substance: ZOPICLONE
     Dosage: UNK
  6. LATUDA [Concomitant]
     Active Substance: LURASIDONE HYDROCHLORIDE
     Dosage: UNK
  7. LITHIUM. [Concomitant]
     Active Substance: LITHIUM
     Dosage: UNK
  8. EFFEXOR [Concomitant]
     Active Substance: VENLAFAXINE HYDROCHLORIDE
     Dosage: UNK

REACTIONS (3)
  - Mania [Unknown]
  - Psychotic disorder [Unknown]
  - Bipolar disorder [Unknown]

NARRATIVE: CASE EVENT DATE: 2017
